FAERS Safety Report 5749865-1 (Version None)
Quarter: 2008Q2

REPORT INFORMATION
  Report Type: 
  Country: None (occurrence: None)
  Receive Date: 20080527
  Receipt Date: 20080512
  Transmission Date: 20081010
  Serious: Yes (Death)
  Sender: FDA-Public Use
  Company Number: TW-ROCHE-563673

PATIENT
  Sex: Female

DRUGS (3)
  1. PEGASYS [Suspect]
     Indication: HEPATITIS C
     Route: 065
     Dates: end: 20080301
  2. ROBATROL [Suspect]
     Indication: HEPATITIS C
     Route: 065
     Dates: end: 20080301
  3. RECORMON [Suspect]
     Indication: ANAEMIA
     Dosage: STRENGTH: 10000 IU, 50000 IU.
     Route: 065
     Dates: end: 20080301

REACTIONS (2)
  - ANAEMIA [None]
  - TUBERCULOSIS [None]
